FAERS Safety Report 5432805-2 (Version None)
Quarter: 2007Q3

REPORT INFORMATION
  Report Type: 
  Country: None (occurrence: None)
  Receive Date: 20070831
  Receipt Date: 20070711
  Transmission Date: 20080115
  Serious: No
  Sender: FDA-Public Use
  Company Number: A0662683A

PATIENT
  Sex: Female

DRUGS (2)
  1. ALLI [Suspect]
  2. ERYTHROMYCIN [Concomitant]

REACTIONS (3)
  - DRY THROAT [None]
  - NAUSEA [None]
  - STOMACH DISCOMFORT [None]
